FAERS Safety Report 5859990-2 (Version None)
Quarter: 2008Q3

REPORT INFORMATION
  Report Type: 
  Country: None (occurrence: None)
  Receive Date: 20080827
  Receipt Date: 20080819
  Transmission Date: 20090109
  Serious: Yes (Other)
  Sender: FDA-Public Use
  Company Number: US-ELI_LILLY_AND_COMPANY-US200808003629

PATIENT
  Sex: Female

DRUGS (5)
  1. HUMALOG [Suspect]
     Indication: DIABETES MELLITUS
     Route: 058
     Dates: start: 19960101
  2. HUMALOG [Suspect]
     Route: 058
     Dates: start: 19960101
  3. HUMULIN R [Suspect]
     Indication: DIABETES MELLITUS
     Dosage: UNK, UNK
     Dates: start: 19960101
  4. HUMULIN R [Suspect]
     Dates: start: 19960101
  5. PLAQUINOL [Concomitant]

REACTIONS (4)
  - BLOOD GLUCOSE DECREASED [None]
  - BLOOD GLUCOSE INCREASED [None]
  - DEAFNESS UNILATERAL [None]
  - HYPOACUSIS [None]
